FAERS Safety Report 12475453 (Version 3)
Quarter: 2016Q3

REPORT INFORMATION
  Report Type: Report from Study
  Country: CA (occurrence: CA)
  Receive Date: 20160617
  Receipt Date: 20160725
  Transmission Date: 20161109
  Serious: Yes (Hospitalization, Other)
  Sender: FDA-Public Use
  Company Number: CA-AMGEN-CANSL2016077235

PATIENT
  Age: 62 Year
  Sex: Male
  Weight: 90.7 kg

DRUGS (4)
  1. METHOTREXATE. [Concomitant]
     Active Substance: METHOTREXATE
     Dosage: 15 MG, QWEEK
  2. ENBREL [Suspect]
     Active Substance: ETANERCEPT
     Indication: RHEUMATOID ARTHRITIS
     Dosage: 50 MG, QWEEK
     Route: 058
     Dates: start: 20041116, end: 201507
  3. PREDNISONE. [Concomitant]
     Active Substance: PREDNISONE
     Dosage: 2.5 MG, UNK
  4. PLAQUENIL [Concomitant]
     Active Substance: HYDROXYCHLOROQUINE SULFATE
     Dosage: 400 MG, UNK

REACTIONS (10)
  - Back pain [Unknown]
  - Pyrexia [Unknown]
  - Blood alkaline phosphatase increased [Unknown]
  - Fatigue [Recovering/Resolving]
  - Anaemia [Unknown]
  - Metastases to bone [Unknown]
  - Haemoglobin decreased [Unknown]
  - Weight increased [Unknown]
  - Prostate cancer metastatic [Unknown]
  - Metastases to nervous system [Unknown]

NARRATIVE: CASE EVENT DATE: 201509
